FAERS Safety Report 18013453 (Version 1)
Quarter: 2020Q3

REPORT INFORMATION
  Report Type: Spontaneous
  Country: US (occurrence: US)
  Receive Date: 20200710
  Receipt Date: 20200710
  Transmission Date: 20201103
  Serious: Yes (Other)
  Sender: FDA-Public Use
  Company Number: None

PATIENT
  Age: 55 Year
  Sex: Male

DRUGS (1)
  1. TRULICITY [Suspect]
     Active Substance: DULAGLUTIDE
     Indication: DIABETES MELLITUS
     Dosage: ?          QUANTITY:1 SYRINGE;OTHER FREQUENCY:WEEKLY;?
     Route: 058
     Dates: start: 20200331, end: 20200710

REACTIONS (1)
  - Device delivery system issue [None]

NARRATIVE: CASE EVENT DATE: 20200710
